FAERS Safety Report 4872444-5 (Version None)
Quarter: 2006Q1

REPORT INFORMATION
  Report Type: 
  Country: None (occurrence: None)
  Receive Date: 20060104
  Receipt Date: 20051229
  Transmission Date: 20060701
  Serious: Yes (Hospitalization)
  Sender: FDA-Public Use
  Company Number: AU-MERCK-0601AUS00003

PATIENT
  Sex: Male

DRUGS (5)
  1. VIOXX [Suspect]
     Route: 048
  2. PRAVASTATIN SODIUM [Concomitant]
     Route: 048
  3. CYPROHEPTADINE HYDROCHLORIDE [Concomitant]
     Route: 048
  4. CARBOMER [Concomitant]
     Route: 065
  5. DEXTRAN 70 AND HYPROMELLOSE [Concomitant]
     Route: 065

REACTIONS (1)
  - CEREBELLAR INFARCTION [None]
